FAERS Safety Report 16435777 (Version 1)
Quarter: 2019Q2

REPORT INFORMATION
  Report Type: Spontaneous
  Country: RU (occurrence: RU)
  Receive Date: 20190614
  Receipt Date: 20190614
  Transmission Date: 20190711
  Serious: Yes (Other)
  Sender: FDA-Public Use
  Company Number: PHHY2017RU167898

PATIENT
  Age: 50 Year
  Sex: Female

DRUGS (1)
  1. GALVUS MET [Suspect]
     Active Substance: METFORMIN HYDROCHLORIDE\VILDAGLIPTIN
     Indication: DIABETES MELLITUS
     Dosage: UNK
     Route: 065

REACTIONS (5)
  - Nausea [Unknown]
  - Ascites [Unknown]
  - Dyspepsia [Unknown]
  - Fatigue [Unknown]
  - Hepatitis [Unknown]
